FAERS Safety Report 4397051-2 (Version None)
Quarter: 2004Q3

REPORT INFORMATION
  Report Type: 
  Country: None (occurrence: None)
  Receive Date: 20040708
  Receipt Date: 20040625
  Transmission Date: 20050211
  Serious: Yes (Hospitalization, Other)
  Sender: FDA-Public Use
  Company Number: JP-JNJFOC-20040403606

PATIENT
  Age: 20 Year
  Sex: Female
  Weight: 50 kg

DRUGS (11)
  1. REMICADE [Suspect]
     Indication: RHEUMATOID ARTHRITIS
     Dosage: 3 MG/KG, 1 IN 1 AS NECESSARY, INTRAVENOUS DRIP; SEE IMAGE
     Route: 041
     Dates: start: 20040220, end: 20040220
  2. REMICADE [Suspect]
     Indication: RHEUMATOID ARTHRITIS
     Dosage: 3 MG/KG, 1 IN 1 AS NECESSARY, INTRAVENOUS DRIP; SEE IMAGE
     Route: 041
     Dates: start: 20040305, end: 20040305
  3. REMICADE [Suspect]
     Indication: RHEUMATOID ARTHRITIS
     Dosage: 3 MG/KG, 1 IN 1 AS NECESSARY, INTRAVENOUS DRIP; SEE IMAGE
     Route: 041
     Dates: start: 20040402, end: 20040402
  4. REMICADE [Suspect]
     Indication: RHEUMATOID ARTHRITIS
     Dosage: 3 MG/KG, 1 IN 1 AS NECESSARY, INTRAVENOUS DRIP; SEE IMAGE
     Route: 041
     Dates: start: 20040524, end: 20040524
  5. METHOTREXATE [Suspect]
     Dosage: 6 MG, IN 1 WEEK; SEE IMAGE
     Dates: start: 20030110, end: 20040209
  6. METHOTREXATE [Suspect]
     Dosage: 6 MG, IN 1 WEEK; SEE IMAGE
     Dates: start: 20040210, end: 20040221
  7. METHOTREXATE [Suspect]
     Dosage: 6 MG, IN 1 WEEK; SEE IMAGE
     Dates: start: 20040222, end: 20040319
  8. METHOTREXATE [Suspect]
     Dosage: 6 MG, IN 1 WEEK; SEE IMAGE
     Dates: start: 20040320, end: 20040420
  9. CYCLOSPORINE [Suspect]
     Dates: end: 20040309
  10. DEXAMETHASONE [Suspect]
     Dosage: 9 MG TAPER TO 2 MG AT THE TIME OF THE EVENT
     Dates: start: 20040220
  11. CELLCEPT [Suspect]

REACTIONS (10)
  - ASPARTATE AMINOTRANSFERASE INCREASED [None]
  - BLOOD ALKALINE PHOSPHATASE INCREASED [None]
  - BLOOD LACTATE DEHYDROGENASE INCREASED [None]
  - DRUG INTERACTION [None]
  - ENCEPHALITIS HERPES [None]
  - GAMMA-GLUTAMYLTRANSFERASE INCREASED [None]
  - PLATELET COUNT INCREASED [None]
  - SPEECH DISORDER [None]
  - WHITE BLOOD CELL COUNT DECREASED [None]
  - WHITE BLOOD CELL COUNT INCREASED [None]
